FAERS Safety Report 5901726-0 (Version None)
Quarter: 2008Q3

REPORT INFORMATION
  Report Type: 
  Country: None (occurrence: None)
  Receive Date: 20080929
  Receipt Date: 20080924
  Transmission Date: 20090109
  Serious: Yes (Other)
  Sender: FDA-Public Use
  Company Number: B0538971A

PATIENT
  Age: 46 Year
  Sex: Female

DRUGS (2)
  1. ADARTREL [Suspect]
     Dosage: .25MG PER DAY
     Route: 065
     Dates: start: 20080916
  2. MULTI-VITAMINS [Concomitant]

REACTIONS (5)
  - ASTHMA [None]
  - HEADACHE [None]
  - PALPITATIONS [None]
  - TREMOR [None]
  - VISION BLURRED [None]
